FAERS Safety Report 4276269-3 (Version None)
Quarter: 2004Q1

REPORT INFORMATION
  Report Type: 
  Country: None (occurrence: None)
  Receive Date: 20040121
  Receipt Date: 20031107
  Transmission Date: 20041129
  Serious: Yes (Hospitalization)
  Sender: FDA-Public Use
  Company Number: DE-ROCHE-351159

PATIENT
  Age: 39 Year
  Sex: Male

DRUGS (27)
  1. MYCOPHENOLATE MOFETIL [Suspect]
     Route: 065
     Dates: start: 20031024, end: 20031031
  2. MYCOPHENOLATE MOFETIL [Suspect]
     Route: 065
     Dates: start: 20031101, end: 20031106
  3. MYCOPHENOLATE MOFETIL [Suspect]
     Route: 065
     Dates: start: 20031107, end: 20040114
  4. MYCOPHENOLATE MOFETIL [Suspect]
     Route: 065
     Dates: start: 20040115
  5. URBASON [Suspect]
     Route: 065
     Dates: start: 20031024, end: 20031024
  6. URBASON [Suspect]
     Route: 065
     Dates: start: 20031025, end: 20031025
  7. URBASON [Suspect]
     Route: 065
     Dates: start: 20031026, end: 20031026
  8. URBASON [Suspect]
     Route: 065
     Dates: start: 20031027, end: 20031027
  9. URBASON [Suspect]
     Route: 065
     Dates: start: 20031028, end: 20031031
  10. URBASON [Suspect]
     Route: 065
     Dates: start: 20031101, end: 20031101
  11. URBASON [Suspect]
     Route: 065
     Dates: start: 20031102, end: 20031102
  12. URBASON [Suspect]
     Route: 065
     Dates: start: 20031103, end: 20031103
  13. URBASON [Suspect]
     Route: 065
     Dates: start: 20031104, end: 20031104
  14. URBASON [Suspect]
     Route: 065
     Dates: start: 20031105, end: 20031119
  15. URBASON [Suspect]
     Route: 065
     Dates: start: 20031120, end: 20031123
  16. URBASON [Suspect]
     Route: 065
     Dates: start: 20031124, end: 20031130
  17. URBASON [Suspect]
     Route: 065
     Dates: start: 20031201, end: 20031217
  18. URBASON [Suspect]
     Route: 065
     Dates: start: 20031218
  19. CYCLOSPORINE [Suspect]
     Route: 065
     Dates: start: 20031024, end: 20031025
  20. CYCLOSPORINE [Suspect]
     Route: 065
     Dates: start: 20031025, end: 20031026
  21. CYCLOSPORINE [Suspect]
     Route: 065
     Dates: start: 20031026
  22. CLONIDIN [Concomitant]
     Dates: start: 20031024, end: 20031024
  23. MOXONIDINE [Concomitant]
     Dates: start: 20031025, end: 20031025
  24. AMLODIPIN [Concomitant]
     Dates: start: 20031026
  25. NIFEDIPINE [Concomitant]
     Dates: start: 20031024, end: 20031024
  26. CEFTRIAXON [Concomitant]
     Dates: start: 20031024, end: 20031026
  27. COTRIM [Concomitant]
     Dates: start: 20031025

REACTIONS (4)
  - ANAEMIA [None]
  - DIABETES MELLITUS [None]
  - VOMITING [None]
  - WOUND DEHISCENCE [None]
